FAERS Safety Report 7538027-3 (Version None)
Quarter: 2011Q2

REPORT INFORMATION
  Report Type: 
  Country: None (occurrence: None)
  Receive Date: 20110609
  Receipt Date: 20110603
  Transmission Date: 20111010
  Serious: Yes (Other)
  Sender: FDA-Public Use
  Company Number: US-PFIZER INC-2011121734

PATIENT
  Sex: Female
  Weight: 67.12 kg

DRUGS (18)
  1. NEURONTIN [Suspect]
     Indication: PAIN
  2. NEURONTIN [Suspect]
     Indication: FIBROMYALGIA
  3. CLONAZEPAM [Concomitant]
     Indication: DEPRESSION
  4. OXYCODONE HCL [Suspect]
     Indication: PAIN
     Dosage: UNK, AS NEEDED
  5. ARIMIDEX [Concomitant]
     Indication: NEOPLASM MALIGNANT
     Dosage: UNK
  6. TAXOL [Concomitant]
     Dosage: UNK
  7. GABAPENTIN [Suspect]
     Indication: NEUROPATHY PERIPHERAL
     Dosage: UNK
  8. OXYCODONE HCL [Suspect]
     Indication: FIBROMYALGIA
  9. NEURONTIN [Suspect]
     Indication: NEUROPATHY PERIPHERAL
     Dosage: UNK, 2X/DAY
     Dates: start: 20060101
  10. CYMBALTA [Concomitant]
     Indication: PAIN
     Dosage: UNK
  11. CYMBALTA [Concomitant]
     Indication: DEPRESSION
  12. CLONAZEPAM [Concomitant]
     Indication: PAIN
     Dosage: UNK
  13. OXYCODONE HCL [Suspect]
     Indication: NEUROPATHY PERIPHERAL
  14. MELATONIN [Concomitant]
     Indication: SLEEP DISORDER
     Dosage: UNK
  15. GABAPENTIN [Suspect]
     Indication: PAIN
  16. GABAPENTIN [Suspect]
     Indication: FIBROMYALGIA
  17. SIMVASTATIN [Concomitant]
     Dosage: UNK
  18. NAPROXEN (ALEVE) [Concomitant]
     Dosage: UNK

REACTIONS (9)
  - PARANOIA [None]
  - DRUG DEPENDENCE [None]
  - PAIN [None]
  - DRUG INEFFECTIVE [None]
  - PATELLA FRACTURE [None]
  - MALAISE [None]
  - WEIGHT INCREASED [None]
  - DRY MOUTH [None]
  - SUICIDAL IDEATION [None]
